FAERS Safety Report 23531172 (Version 1)
Quarter: 2024Q1

REPORT INFORMATION
  Report Type: Spontaneous
  Country: FR (occurrence: FR)
  Receive Date: 20240216
  Receipt Date: 20240216
  Transmission Date: 20240409
  Serious: Yes (Other)
  Sender: FDA-Public Use
  Company Number: None

PATIENT
  Age: 92 Year
  Sex: Male
  Weight: 59 kg

DRUGS (3)
  1. METRONIDAZOLE [Suspect]
     Active Substance: METRONIDAZOLE
     Indication: Sepsis
     Dosage: 1500 MG (MILLIGRAM), ONCE DAILY
     Route: 042
     Dates: start: 20231202, end: 20231220
  2. CEFEPIME HYDROCHLORIDE [Suspect]
     Active Substance: CEFEPIME HYDROCHLORIDE
     Indication: Sepsis
     Dosage: 6 G (GRAM), ONCE DAILY (POWDER FOR PARENTERAL USE)
     Route: 042
     Dates: start: 20231212, end: 20231220
  3. EUPANTOL [Concomitant]
     Active Substance: PANTOPRAZOLE SODIUM
     Indication: Ulcer
     Dosage: 80 MG (MILLIGRAM), ONCE DAILY (POWDER FOR SOLUTION INJECTABLE (IV))
     Route: 042
     Dates: start: 20231212, end: 20231220

REACTIONS (2)
  - Hallucination, visual [Unknown]
  - Confusional state [Unknown]

NARRATIVE: CASE EVENT DATE: 20231214
